FAERS Safety Report 7569813-1 (Version None)
Quarter: 2011Q2

REPORT INFORMATION
  Report Type: 
  Country: None (occurrence: None)
  Receive Date: 20110624
  Receipt Date: 20110616
  Transmission Date: 20111010
  Serious: Yes (Other)
  Sender: FDA-Public Use
  Company Number: US-JNJFOC-20110609437

PATIENT
  Sex: Male
  Weight: 88.45 kg

DRUGS (3)
  1. NUCYNTA [Suspect]
     Indication: PAIN
     Route: 048
     Dates: start: 20110614, end: 20110614
  2. AUGMENTIN '125' [Concomitant]
     Indication: INFECTION
     Route: 048
     Dates: start: 20110613
  3. TYLENOL-500 [Concomitant]
     Indication: PAIN
     Route: 048

REACTIONS (4)
  - DEAFNESS UNILATERAL [None]
  - HALLUCINATION [None]
  - AGITATION [None]
  - CONFUSIONAL STATE [None]
